FAERS Safety Report 14301536 (Version 3)
Quarter: 2019Q3

REPORT INFORMATION
  Report Type: Spontaneous
  Country: JP (occurrence: JP)
  Receive Date: 20171219
  Receipt Date: 20190722
  Transmission Date: 20191004
  Serious: Yes (Death, Hospitalization, Other)
  Sender: FDA-Public Use
  Company Number: JP-JNJFOC-20171223494

PATIENT
  Age: 73 Year
  Sex: Male
  Weight: 67.1 kg

DRUGS (6)
  1. RIVAROXABAN [Suspect]
     Active Substance: RIVAROXABAN
     Indication: DEEP VEIN THROMBOSIS
     Dosage: 15 MG, QD
     Route: 048
  2. CARBAZOCHROME SODIUM SULFONATE [Concomitant]
     Active Substance: CARBAZOCHROME SODIUM SULFONATE
     Route: 065
  3. LUNESTA [Concomitant]
     Active Substance: ESZOPICLONE
     Route: 065
  4. FERROUS SODIUM CITRATE [Concomitant]
     Active Substance: SODIUM FERROUS CITRATE
     Route: 065
  5. RIVAROXABAN [Suspect]
     Active Substance: RIVAROXABAN
     Dosage: 15 MG, QD
     Route: 048
     Dates: start: 20170518
  6. SUPER CAL600-MG300 [Concomitant]

REACTIONS (4)
  - Tumour haemorrhage [Unknown]
  - Haematuria [Recovered/Resolved]
  - Neoplasm [Fatal]
  - Bladder tamponade [Unknown]

NARRATIVE: CASE EVENT DATE: 20170408
